FAERS Safety Report 8780940 (Version 2)
Quarter: 2012Q4

REPORT INFORMATION
  Report Type: 
  Country: JP (occurrence: JP)
  Receive Date: 20120913
  Receipt Date: 20120927
  Transmission Date: 20130627
  Serious: Yes (Other)
  Sender: FDA-Public Use
  Company Number: JP-B.I. PHARMACEUTICALS,INC./RIDGEFIELD-2012-BP-21531NB

PATIENT

DRUGS (1)
  1. PRAZAXA [Suspect]
     Route: 065

REACTIONS (2)
  - Ileus [Unknown]
  - Protein induced by vitamin K absence or antagonist II increased [Unknown]
